FAERS Safety Report 9302724 (Version 2)
Quarter: 2013Q3

REPORT INFORMATION
  Report Type: Report from Study
  Country: BR (occurrence: BR)
  Receive Date: 20130522
  Receipt Date: 20130705
  Transmission Date: 20140515
  Serious: Yes (Hospitalization, Other)
  Sender: FDA-Public Use
  Company Number: PHHY2013BR043250

PATIENT
  Sex: Female
  Weight: 65 kg

DRUGS (6)
  1. GILENYA [Suspect]
     Indication: MULTIPLE SCLEROSIS
     Dosage: 1 DF, QD
     Route: 048
     Dates: start: 201303
  2. AMPLICTIL [Concomitant]
     Indication: FEELING OF RELAXATION
     Dosage: 25 MG, BID
     Route: 048
  3. RIVOTRIL [Concomitant]
     Indication: SLEEP DISORDER
     Dosage: 2 MG, QD
     Route: 048
  4. NEXIUM [Concomitant]
     Indication: OESOPHAGITIS
     Dosage: 40 MG, BID
     Route: 048
  5. NATIFA [Concomitant]
     Dosage: 1 DF, QD
     Route: 048
  6. FLUOXETINE [Concomitant]
     Indication: DEPRESSION
     Dosage: 40 OT, UNK

REACTIONS (6)
  - Convulsion [Recovered/Resolved]
  - Chest pain [Recovered/Resolved]
  - Trigeminal neuralgia [Not Recovered/Not Resolved]
  - Malaise [Unknown]
  - Concomitant disease aggravated [Unknown]
  - Speech disorder [Unknown]
